FAERS Safety Report 9753635 (Version 1)
Quarter: 2013Q4

REPORT INFORMATION
  Report Type: Report from Study
  Country: AR (occurrence: AR)
  Receive Date: 20131213
  Receipt Date: 20131213
  Transmission Date: 20140711
  Serious: Yes (Hospitalization, Other)
  Sender: FDA-Public Use
  Company Number: PHHY2013AR146124

PATIENT
  Sex: Female

DRUGS (2)
  1. DIOVAN [Suspect]
     Indication: HYPERTENSION
     Dosage: 80 MG, DAILY
     Route: 048
     Dates: start: 201202, end: 201205
  2. DIOVAN [Suspect]
     Dosage: 80 MG, DAILY
     Route: 048
     Dates: start: 201208

REACTIONS (2)
  - Fractured sacrum [Recovering/Resolving]
  - Pelvic fracture [Recovering/Resolving]
